FAERS Safety Report 20027149 (Version 1)
Quarter: 2021Q4

REPORT INFORMATION
  Report Type: Spontaneous
  Country: US (occurrence: US)
  Receive Date: 20211103
  Receipt Date: 20211103
  Transmission Date: 20220304
  Serious: No
  Sender: FDA-Public Use
  Company Number: US-SANOFI-00827365

PATIENT
  Age: 15 Year
  Sex: Female
  Weight: 36.281 kg

DRUGS (2)
  1. DUPIXENT [Suspect]
     Active Substance: DUPILUMAB
     Indication: Eczema
     Dosage: 400 MG, 1X
     Route: 058
     Dates: start: 202109, end: 202109
  2. DUPIXENT [Suspect]
     Active Substance: DUPILUMAB
     Dosage: 200 MG, QOW
     Route: 058
     Dates: start: 202109

REACTIONS (7)
  - Nasopharyngitis [Unknown]
  - Pruritus [Unknown]
  - Dry skin [Unknown]
  - Skin weeping [Unknown]
  - Pain [Unknown]
  - Eczema [Unknown]
  - Unevaluable event [Unknown]

NARRATIVE: CASE EVENT DATE: 20211018
